FAERS Safety Report 16280074 (Version 1)
Quarter: 2019Q2

REPORT INFORMATION
  Report Type: Spontaneous
  Country: IT (occurrence: IT)
  Receive Date: 20190507
  Receipt Date: 20190507
  Transmission Date: 20190711
  Serious: Yes (Hospitalization, Other)
  Sender: FDA-Public Use
  Company Number: IT-SA-2019SA122338

PATIENT
  Age: 34 Year
  Sex: Male
  Weight: 52 kg

DRUGS (1)
  1. LEMTRADA [Suspect]
     Active Substance: ALEMTUZUMAB
     Indication: MULTIPLE SCLEROSIS
     Route: 041
     Dates: start: 20180403, end: 20180405

REACTIONS (1)
  - Immune thrombocytopenic purpura [Unknown]

NARRATIVE: CASE EVENT DATE: 20190423
